FAERS Safety Report 13237951 (Version 1)
Quarter: 2017Q1

REPORT INFORMATION
  Report Type: Spontaneous
  Country: US (occurrence: US)
  Receive Date: 20170215
  Receipt Date: 20170215
  Transmission Date: 20170428
  Serious: Yes (Disabling)
  Sender: FDA-Public Use
  Company Number: None

PATIENT
  Sex: Female

DRUGS (2)
  1. MIRALAX [Suspect]
     Active Substance: POLYETHYLENE GLYCOL 3350
     Indication: CONSTIPATION
     Dosage: ?          QUANTITY:1 CAPFUL;?
     Route: 048
  2. CHILDREN^S MULTIVITAMIN [Concomitant]

REACTIONS (5)
  - Hyperacusis [None]
  - Dissociation [None]
  - Eye movement disorder [None]
  - Aphasia [None]
  - Anger [None]

NARRATIVE: CASE EVENT DATE: 20140515
